FAERS Safety Report 6515986-9 (Version None)
Quarter: 2009Q4

REPORT INFORMATION
  Report Type: 
  Country: None (occurrence: None)
  Receive Date: 20091211
  Receipt Date: 20090702
  Transmission Date: 20100525
  Serious: Yes (Other)
  Sender: FDA-Public Use
  Company Number: SPV1-2009-01390

PATIENT
  Age: 34 Year
  Sex: Male
  Weight: 83.9 kg

DRUGS (3)
  1. ADDERALL XR 10 [Suspect]
     Indication: ATTENTION DEFICIT/HYPERACTIVITY DISORDER
     Dosage: ORAL; 60 MG, 1X/DAY: QD
     Route: 048
     Dates: start: 20051101, end: 20051201
  2. ADDERALL XR 10 [Suspect]
     Indication: ATTENTION DEFICIT/HYPERACTIVITY DISORDER
     Dosage: ORAL; 60 MG, 1X/DAY: QD
     Route: 048
     Dates: start: 20051201, end: 20060101
  3. CYMBALTA [Suspect]
     Indication: DEPRESSION
     Dates: start: 20051101, end: 20051201

REACTIONS (4)
  - FEELING JITTERY [None]
  - OVERDOSE [None]
  - PSYCHOTIC DISORDER [None]
  - TIC [None]
